FAERS Safety Report 16278425 (Version 1)
Quarter: 2019Q2

REPORT INFORMATION
  Report Type: Spontaneous
  Country: GB (occurrence: GB)
  Receive Date: 20190506
  Receipt Date: 20190506
  Transmission Date: 20190711
  Serious: Yes (Other)
  Sender: FDA-Public Use
  Company Number: GB-TEVA-2019-GB-1045184

PATIENT
  Age: 76 Year
  Sex: Female

DRUGS (6)
  1. OTRIVINE [Suspect]
     Active Substance: XYLOMETAZOLINE HYDROCHLORIDE
     Indication: NASAL CONGESTION
  2. FLUTICASONE. [Suspect]
     Active Substance: FLUTICASONE
     Indication: NASAL CONGESTION
  3. COCODAMOL [Concomitant]
     Active Substance: ACETAMINOPHEN\CODEINE PHOSPHATE
     Indication: BACK PAIN
     Dosage: OCCASIONAL
  4. BUSCOPAN [Concomitant]
     Active Substance: BUTYLSCOPOLAMINE BROMIDE
     Indication: MUSCLE SPASMS
  5. PARACETAMOL [Concomitant]
     Active Substance: ACETAMINOPHEN
  6. OMEPRAZOLE. [Concomitant]
     Active Substance: OMEPRAZOLE
     Indication: GASTROOESOPHAGEAL REFLUX DISEASE

REACTIONS (10)
  - Cerumen impaction [Not Recovered/Not Resolved]
  - Vomiting [Not Recovered/Not Resolved]
  - Headache [Not Recovered/Not Resolved]
  - Rhinorrhoea [Not Recovered/Not Resolved]
  - Rebound effect [Not Recovered/Not Resolved]
  - Eye pain [Not Recovered/Not Resolved]
  - Abdominal pain upper [Not Recovered/Not Resolved]
  - Lacrimation increased [Not Recovered/Not Resolved]
  - Gastrointestinal infection [Not Recovered/Not Resolved]
  - Nausea [Not Recovered/Not Resolved]
